FAERS Safety Report 4546662-X (Version None)
Quarter: 2005Q1

REPORT INFORMATION
  Report Type: 
  Country: None (occurrence: None)
  Receive Date: 20050105
  Receipt Date: 20041221
  Transmission Date: 20050727
  Serious: Yes (Death, Hospitalization)
  Sender: FDA-Public Use
  Company Number: 2004AL000891

PATIENT
  Age: 58 Year
  Sex: Female

DRUGS (9)
  1. CHILDREN'S APAP ELIXIR (ACETAMINOPHEN) (ALPHARMA) [Suspect]
     Dosage: PO
     Route: 048
  2. INFANTS' APAP DROPS (ACETAMINOPHEN) (ALPHARMA) [Suspect]
     Dosage: PO
     Route: 048
  3. OLANZAPINE [Suspect]
     Dosage: PO
     Route: 048
  4. BUSPIRONE [Suspect]
     Dosage: PO
     Route: 048
  5. GABAPENTIN CAPSULES, 100 MG, 300 MG + 400 MG (PUREPAC) [Suspect]
     Dosage: PO
     Route: 048
  6. GABAPENTIN TABLETS, 600 MG + 800 MG (PUREPAC) [Suspect]
     Dosage: PO
     Route: 048
  7. PAROXETINE [Suspect]
     Dosage: PO
     Route: 048
  8. LEVOTHYROXINE [Suspect]
     Dosage: PO
     Route: 048
  9. ESTROGENS [Suspect]
     Dosage: PO
     Route: 048

REACTIONS (17)
  - ACIDOSIS [None]
  - ACUTE RESPIRATORY DISTRESS SYNDROME [None]
  - ALANINE AMINOTRANSFERASE INCREASED [None]
  - ARRHYTHMIA [None]
  - ASPARTATE AMINOTRANSFERASE INCREASED [None]
  - BLOOD CALCIUM DECREASED [None]
  - CARDIAC ARREST [None]
  - COAGULOPATHY [None]
  - COMA [None]
  - COMPARTMENT SYNDROME [None]
  - COMPLETED SUICIDE [None]
  - HAEMODIALYSIS [None]
  - HYPOTENSION [None]
  - INTENTIONAL MISUSE [None]
  - LABILE BLOOD PRESSURE [None]
  - PROCEDURAL COMPLICATION [None]
  - RENAL FAILURE [None]
